FAERS Safety Report 7359033-8 (Version None)
Quarter: 2011Q1

REPORT INFORMATION
  Report Type: 
  Country: None (occurrence: None)
  Receive Date: 20110317
  Receipt Date: 20110315
  Transmission Date: 20110831
  Serious: Yes (Other)
  Sender: FDA-Public Use
  Company Number: NO-PFIZER INC-2011056513

PATIENT
  Age: 24 Year
  Sex: Male

DRUGS (2)
  1. RIVOTRIL [Interacting]
     Indication: ANXIETY
     Dates: start: 20100101, end: 20101201
  2. LYRICA [Suspect]
     Indication: ANXIETY
     Dosage: 300 MG, 3X/DAY
     Dates: start: 20100101, end: 20101201

REACTIONS (3)
  - DRUG ABUSER [None]
  - DRUG INTERACTION [None]
  - DRUG ABUSE [None]
